FAERS Safety Report 9236538 (Version 1)
Quarter: 2013Q2

REPORT INFORMATION
  Report Type: Spontaneous
  Country: NL (occurrence: NL)
  Receive Date: 20130417
  Receipt Date: 20130417
  Transmission Date: 20140414
  Serious: Yes (Death)
  Sender: FDA-Public Use
  Company Number: NL-ROCHE-1215042

PATIENT
  Sex: Male

DRUGS (3)
  1. AVASTIN [Suspect]
     Indication: COLON CANCER METASTATIC
     Route: 042
  2. XELODA [Suspect]
     Indication: COLON CANCER METASTATIC
     Route: 048
  3. OXALIPLATIN [Suspect]
     Indication: COLON CANCER METASTATIC
     Route: 042

REACTIONS (1)
  - Haemorrhage [Fatal]
